FAERS Safety Report 20117046 (Version 2)
Quarter: 2022Q1

REPORT INFORMATION
  Report Type: Spontaneous
  Country: CN (occurrence: CN)
  Receive Date: 20211126
  Receipt Date: 20220107
  Transmission Date: 20220424
  Serious: Yes (Other)
  Sender: FDA-Public Use
  Company Number: CN-002147023-NVSC2021CN264764

PATIENT
  Age: 50 Year
  Sex: Male

DRUGS (2)
  1. LUCENTIS [Suspect]
     Active Substance: RANIBIZUMAB
     Indication: Papilloedema
     Route: 065
  2. LUCENTIS [Suspect]
     Active Substance: RANIBIZUMAB
     Indication: Swelling

REACTIONS (4)
  - Blindness unilateral [Unknown]
  - Visual acuity reduced [Unknown]
  - Conjunctival defect [Unknown]
  - Off label use [Unknown]

NARRATIVE: CASE EVENT DATE: 20211113
